FAERS Safety Report 6039968-9 (Version None)
Quarter: 2009Q1

REPORT INFORMATION
  Report Type: 
  Country: None (occurrence: None)
  Receive Date: 20090116
  Receipt Date: 20071106
  Transmission Date: 20090719
  Serious: No
  Sender: FDA-Public Use
  Company Number: US-BRISTOL-MYERS SQUIBB COMPANY-13969548

PATIENT
  Age: 55 Year
  Sex: Male
  Weight: 91 kg

DRUGS (7)
  1. ABILIFY [Suspect]
     Indication: BIPOLAR DISORDER
     Dosage: CURRENT DOSE 10 MG IN MORNING, 20MG IN EVENING. CHANGED TO 30 MG HS FROM 5NOV07
     Dates: start: 20060301
  2. LAMICTAL [Concomitant]
  3. KLONOPIN [Concomitant]
  4. COUMADIN [Concomitant]
  5. LIPITOR [Concomitant]
  6. LANTUS [Concomitant]
  7. HUMALOG [Concomitant]

REACTIONS (8)
  - AKATHISIA [None]
  - ANXIETY [None]
  - HEADACHE [None]
  - HEPATIC ENZYME INCREASED [None]
  - INSOMNIA [None]
  - LIVER FUNCTION TEST ABNORMAL [None]
  - PANCREATIC ENZYMES INCREASED [None]
  - RESTLESSNESS [None]
